FAERS Safety Report 4317031-2 (Version None)
Quarter: 2004Q1

REPORT INFORMATION
  Report Type: 
  Country: None (occurrence: None)
  Receive Date: 20040312
  Receipt Date: 20040301
  Transmission Date: 20041129
  Serious: Yes (Other)
  Sender: FDA-Public Use
  Company Number: US-JNJFOC-20031102766

PATIENT
  Age: 33 Year
  Sex: Female
  Weight: 71.3962 kg

DRUGS (1)
  1. REMICADE [Suspect]
     Indication: UVEITIS
     Dosage: 200 MG, INTRAVENOUS
     Route: 042
     Dates: start: 20031009

REACTIONS (4)
  - ABORTION INDUCED [None]
  - COMPLICATIONS OF MATERNAL EXPOSURE TO THERAPEUTIC DRUGS [None]
  - MATERNAL DRUGS AFFECTING FOETUS [None]
  - PREGNANCY [None]
